FAERS Safety Report 9719287 (Version 2)
Quarter: 2013Q4

REPORT INFORMATION
  Report Type: Report from Study
  Country: US (occurrence: US)
  Receive Date: 20131127
  Receipt Date: 20131223
  Transmission Date: 20140711
  Serious: Yes (Death, Other)
  Sender: FDA-Public Use
  Company Number: PHEH2013US024778

PATIENT
  Age: 61 Year
  Sex: Male

DRUGS (11)
  1. GILENYA [Suspect]
     Indication: RELAPSING-REMITTING MULTIPLE SCLEROSIS
     Dosage: 0.5 MG, QD
     Route: 048
     Dates: start: 20120904
  2. VENLAFAXINE [Concomitant]
     Dosage: 75 MG, UNK
     Route: 048
  3. GABAPENTIN [Concomitant]
     Dosage: 800 MG, TID
     Route: 048
  4. LOSARTAN [Concomitant]
     Dosage: 100 MG, QD
     Route: 048
  5. SIMVASTATIN [Concomitant]
     Dosage: 20 MG, QD
     Route: 048
  6. TEMAZEPAM [Concomitant]
     Dosage: 30 MG, QD
     Route: 048
  7. TERAZOSIN [Concomitant]
     Dosage: 5 MG, UNK
     Route: 048
  8. CYCLOBENZAPRINE [Concomitant]
     Dosage: 10 MG, PRN
  9. VICODIN [Concomitant]
  10. RESTORIL [Concomitant]
     Dosage: 30 MG, PRN
  11. XANAX [Concomitant]
     Dosage: 0.5 MG, BID

REACTIONS (5)
  - Malignant neoplasm of unknown primary site [Fatal]
  - Ventricular extrasystoles [Unknown]
  - Supraventricular extrasystoles [Unknown]
  - Blood pressure increased [Unknown]
  - Fall [Unknown]
